FAERS Safety Report 8419807-9 (Version None)
Quarter: 2012Q2

REPORT INFORMATION
  Report Type: 
  Country: None (occurrence: None)
  Receive Date: 20120607
  Receipt Date: 20120529
  Transmission Date: 20120825
  Serious: Yes (Other)
  Sender: FDA-Public Use
  Company Number: US-VERTEX PHARMACEUTICALS INC.-AE-2012-008044

PATIENT
  Sex: Male

DRUGS (3)
  1. PEGASYS [Concomitant]
     Indication: HEPATITIS C
     Dates: start: 20120130
  2. RIBAVIRIN [Concomitant]
     Indication: HEPATITIS C
     Dates: start: 20120130
  3. INCIVEK [Suspect]
     Indication: HEPATITIS C
     Dates: start: 20120130, end: 20120423

REACTIONS (2)
  - EXFOLIATIVE RASH [None]
  - THROAT TIGHTNESS [None]
